FAERS Safety Report 4617790-5 (Version None)
Quarter: 2005Q1

REPORT INFORMATION
  Report Type: 
  Country: None (occurrence: None)
  Receive Date: 20050324
  Receipt Date: 20050314
  Transmission Date: 20050727
  Serious: Yes (Disabling)
  Sender: FDA-Public Use
  Company Number: FR-JNJFOC-20050303697

PATIENT
  Age: 67 Year
  Sex: Male

DRUGS (2)
  1. IMODIUM [Suspect]
     Indication: DIARRHOEA
     Route: 049
     Dates: start: 20040904, end: 20040906
  2. ESIDRIX [Suspect]
     Indication: DRUG USE FOR UNKNOWN INDICATION
     Route: 049

REACTIONS (1)
  - ANGLE CLOSURE GLAUCOMA [None]
